FAERS Safety Report 7222038-1 (Version None)
Quarter: 2011Q1

REPORT INFORMATION
  Report Type: 
  Country: None (occurrence: None)
  Receive Date: 20110112
  Receipt Date: 20101230
  Transmission Date: 20110831
  Serious: Yes (Other)
  Sender: FDA-Public Use
  Company Number: PHHY2010GB90292

PATIENT
  Age: 32 Year
  Sex: Female
  Weight: 84.5 kg

DRUGS (5)
  1. VECURONIUM BROMIDE [Concomitant]
  2. AMOXICILLIN AND CLAVULANATE POTASSIUM [Suspect]
     Indication: ANTIBIOTIC PROPHYLAXIS
     Dosage: 1.2 G, UNK
     Route: 042
     Dates: start: 20101214, end: 20101214
  3. DEXAMETHASONE [Concomitant]
  4. PROPOFOL [Concomitant]
  5. REMIFENTANIL [Concomitant]

REACTIONS (4)
  - OXYGEN SATURATION DECREASED [None]
  - BRONCHOSPASM [None]
  - TACHYCARDIA [None]
  - HYPOTENSION [None]
